FAERS Safety Report 17994898 (Version 1)
Quarter: 2020Q3

REPORT INFORMATION
  Report Type: Report from Study
  Country: IE (occurrence: IE)
  Receive Date: 20200708
  Receipt Date: 20200708
  Transmission Date: 20201103
  Serious: Yes (Other)
  Sender: FDA-Public Use
  Company Number: IE-EMD SERONO-9153329

PATIENT
  Sex: Female

DRUGS (2)
  1. MAVENCLAD [Suspect]
     Active Substance: CLADRIBINE
     Indication: RELAPSING-REMITTING MULTIPLE SCLEROSIS
     Dosage: FIRST YEAR FIRST WEEK THERAPY: TOOK 2 DOSAGE FORMS ON DAY 1 AND 1 DOSAGE FORM ON DAYS 2 TO 5.
     Route: 048
     Dates: start: 20200106
  2. MAVENCLAD [Suspect]
     Active Substance: CLADRIBINE
     Dosage: FIRST YEAR WEEK FIVE THERAPY: TOOK 2 DOSAGE FORMS ON DAY 1 AND 1 DOSAGE FORM ON DAYS 2 TO 5.
     Route: 048
     Dates: start: 20200203

REACTIONS (2)
  - Platelet count decreased [Recovering/Resolving]
  - Lymphocyte count decreased [Not Recovered/Not Resolved]
